FAERS Safety Report 8085939-0 (Version None)
Quarter: 2012Q1

REPORT INFORMATION
  Report Type: 
  Country: None (occurrence: None)
  Receive Date: 20120128
  Receipt Date: 20110504
  Transmission Date: 20120608
  Serious: No
  Sender: FDA-Public Use
  Company Number: US-ABBOTT-11P-163-0723535-00

PATIENT
  Sex: Female

DRUGS (20)
  1. FOLIC ACID [Concomitant]
     Indication: DRUG THERAPY
  2. PRILOSEC [Concomitant]
     Indication: GASTROOESOPHAGEAL REFLUX DISEASE
  3. SYNTHROID [Concomitant]
     Indication: HYPOTHYROIDISM
  4. VITAMIN D [Concomitant]
     Indication: PRODUCT USED FOR UNKNOWN INDICATION
     Dosage: DAILY
  5. WELLBUTRIN [Concomitant]
     Indication: BIPOLAR II DISORDER
  6. BENTYL [Concomitant]
     Indication: CROHN'S DISEASE
  7. KLONOPIN [Concomitant]
     Indication: FIBROMYALGIA
     Dosage: AT BEDTIME
  8. NEURONTIN [Concomitant]
     Indication: FIBROMYALGIA
  9. ALIGN PROBIOTIC [Concomitant]
     Indication: PRODUCT USED FOR UNKNOWN INDICATION
     Dosage: DAILY
  10. LAMICTAL [Concomitant]
     Indication: BIPOLAR II DISORDER
  11. TRAMADOL HCL [Concomitant]
     Indication: FIBROMYALGIA
  12. SOMA [Concomitant]
     Indication: FIBROMYALGIA
  13. OXYBUTYNIN [Concomitant]
     Indication: CYSTITIS INTERSTITIAL
  14. HUMIRA [Suspect]
     Indication: CROHN'S DISEASE
     Route: 058
     Dates: start: 20110411
  15. ABILIFY [Concomitant]
     Indication: BIPOLAR II DISORDER
  16. ELMIRON [Concomitant]
     Indication: CYSTITIS INTERSTITIAL
  17. PENTASA [Concomitant]
     Indication: CROHN'S DISEASE
  18. VITAMIN B-12 [Concomitant]
     Indication: VITAMIN SUPPLEMENTATION
     Route: 050
  19. CENTRUM WOMEN [Concomitant]
     Indication: VITAMIN SUPPLEMENTATION
     Dosage: DAILY
  20. CLARITIN-D [Concomitant]
     Indication: HYPERSENSITIVITY

REACTIONS (4)
  - HYPERHIDROSIS [None]
  - TACHYCARDIA [None]
  - INJECTION SITE PAIN [None]
  - NIGHT SWEATS [None]
